FAERS Safety Report 4333643-4 (Version None)
Quarter: 2004Q2

REPORT INFORMATION
  Report Type: 
  Country: None (occurrence: None)
  Receive Date: 20040402
  Receipt Date: 20040323
  Transmission Date: 20050107
  Serious: Yes (Hospitalization)
  Sender: FDA-Public Use
  Company Number: KDL032608

PATIENT
  Age: 77 Year
  Sex: Male
  Weight: 68.6 kg

DRUGS (7)
  1. EPOGEN [Suspect]
     Indication: RENAL FAILURE CHRONIC
     Dosage: 60000 U, WEEKLY, SC
     Route: 058
     Dates: start: 20020528, end: 20031001
  2. DIGOXIN [Concomitant]
  3. IRBESARTAN [Concomitant]
  4. CARVEDILOL [Concomitant]
  5. GLYBURIDE [Concomitant]
  6. BUMETANIDE [Concomitant]
  7. GLYCERYL TRINITRATE [Concomitant]

REACTIONS (3)
  - DRUG EFFECT DECREASED [None]
  - INFLAMMATION LOCALISED [None]
  - LIGAMENT DISORDER [None]
